FAERS Safety Report 6604564-9 (Version None)
Quarter: 2010Q1

REPORT INFORMATION
  Report Type: 
  Country: None (occurrence: None)
  Receive Date: 20100226
  Receipt Date: 20091123
  Transmission Date: 20100710
  Serious: No
  Sender: FDA-Public Use
  Company Number: A0831912A

PATIENT
  Age: 53 Year
  Sex: Male

DRUGS (3)
  1. LAMICTAL CD [Suspect]
     Dosage: 200MG TWICE PER DAY
     Route: 048
  2. VYVANSE [Concomitant]
  3. SEROQUEL [Concomitant]
     Dosage: 200MG AT NIGHT

REACTIONS (1)
  - SALIVARY HYPERSECRETION [None]
